FAERS Safety Report 10525240 (Version 1)
Quarter: 2014Q4

REPORT INFORMATION
  Report Type: Spontaneous
  Country: GB (occurrence: GB)
  Receive Date: 20141017
  Receipt Date: 20141017
  Transmission Date: 20150528
  Serious: Yes (Other)
  Sender: FDA-Public Use
  Company Number: GB-TEVA-516250GER

PATIENT
  Age: 34 Year
  Sex: Male
  Weight: 91 kg

DRUGS (2)
  1. BUPRENORPHINE PATCH [Suspect]
     Active Substance: BUPRENORPHINE
     Indication: PAIN MANAGEMENT
     Dosage: 1 DF, Q1H, 52.5 AND 35 MCG/H
     Route: 062
  2. BUPRENORPHINE PATCH [Suspect]
     Active Substance: BUPRENORPHINE
     Route: 048

REACTIONS (4)
  - Ear pain [Recovered/Resolved with Sequelae]
  - Ear swelling [Recovered/Resolved with Sequelae]
  - Tinnitus [Not Recovered/Not Resolved]
  - Ear infection [Recovered/Resolved with Sequelae]
